FAERS Safety Report 25177816 (Version 1)
Quarter: 2025Q2

REPORT INFORMATION
  Report Type: Report from Study
  Country: RO (occurrence: RO)
  Receive Date: 20250409
  Receipt Date: 20250409
  Transmission Date: 20250717
  Serious: Yes (Other)
  Sender: NOVARTIS
  Company Number: RO-002147023-NVSC2025RO046636

PATIENT
  Age: 51 Year
  Sex: Female

DRUGS (2)
  1. KISQALI [Suspect]
     Active Substance: RIBOCICLIB
     Indication: Breast neoplasm
     Dosage: 200 MG, QD (3 PER DAY)
     Route: 048
     Dates: start: 202305, end: 202306
  2. KISQALI [Suspect]
     Active Substance: RIBOCICLIB
     Dosage: 200 MG, QD (2 PER DAY)
     Route: 048
     Dates: start: 202307, end: 202503

REACTIONS (5)
  - Nasopharyngitis [Recovered/Resolved]
  - Nasopharyngitis [Recovered/Resolved]
  - Arthralgia [Recovering/Resolving]
  - Decreased immune responsiveness [Unknown]
  - Transaminases increased [Unknown]

NARRATIVE: CASE EVENT DATE: 20230101
